FAERS Safety Report 5862967-4 (Version None)
Quarter: 2008Q3

REPORT INFORMATION
  Report Type: 
  Country: None (occurrence: None)
  Receive Date: 20080828
  Receipt Date: 20080818
  Transmission Date: 20090109
  Serious: Yes (Hospitalization)
  Sender: FDA-Public Use
  Company Number: B0527729B

PATIENT
  Age: 61 Year
  Sex: Female
  Weight: 53 kg

DRUGS (6)
  1. TOPOTECAN [Suspect]
     Indication: OVARIAN CANCER
     Dosage: 5.5MG PER DAY
     Route: 042
     Dates: start: 20080328
  2. LAPATINIB [Suspect]
     Indication: OVARIAN CANCER
     Dosage: 1250MG PER DAY
     Route: 048
     Dates: start: 20080328, end: 20080612
  3. XANAX [Concomitant]
     Route: 048
  4. IMOVANE [Concomitant]
     Route: 048
  5. SMECTA [Concomitant]
     Route: 048
  6. FUMAFER [Concomitant]
     Route: 048

REACTIONS (14)
  - ANAEMIA [None]
  - BACTERIAL INFECTION [None]
  - BONE MARROW FAILURE [None]
  - DRUG TOXICITY [None]
  - ELECTROLYTE IMBALANCE [None]
  - FEBRILE NEUTROPENIA [None]
  - GENERAL PHYSICAL HEALTH DETERIORATION [None]
  - HYPOALBUMINAEMIA [None]
  - HYPOCALCAEMIA [None]
  - PERITONEAL NEOPLASM [None]
  - PYREXIA [None]
  - THROMBOCYTOPENIA [None]
  - VERTIGO POSITIONAL [None]
  - WEIGHT DECREASED [None]
